FAERS Safety Report 9362127 (Version 2)
Quarter: 2013Q3

REPORT INFORMATION
  Report Type: Spontaneous
  Country: CN (occurrence: CN)
  Receive Date: 20130621
  Receipt Date: 20130707
  Transmission Date: 20140515
  Serious: Yes (Hospitalization)
  Sender: FDA-Public Use
  Company Number: CN-009507513-1306CHN010260

PATIENT
  Age: 89 Year
  Sex: Male
  Weight: 74 kg

DRUGS (6)
  1. ZOCOR [Suspect]
     Indication: CORONARY ARTERY DISEASE
     Dosage: 20 MG, QD
     Route: 048
     Dates: start: 20111009, end: 20111123
  2. TIENAM [Concomitant]
     Indication: LUNG INFECTION
     Dosage: 0.5 G, TID
     Route: 041
     Dates: start: 20111104, end: 20111121
  3. CEFEPIME [Concomitant]
     Indication: INFECTION
     Dosage: UNK
  4. LEVOFLOXACIN [Concomitant]
     Indication: INFECTION
  5. BETAMIPRON (+) PANIPENEM [Concomitant]
     Indication: INFECTION
  6. FLUCONAZOLE [Concomitant]
     Indication: INFECTION

REACTIONS (3)
  - Lung infection [Unknown]
  - Myoglobin blood increased [Recovered/Resolved]
  - Drug interaction [Unknown]
